FAERS Safety Report 5582509-0 (Version None)
Quarter: 2007Q4

REPORT INFORMATION
  Report Type: 
  Country: None (occurrence: None)
  Receive Date: 20071130
  Receipt Date: 20061025
  Transmission Date: 20080405
  Serious: Yes (Disabling)
  Sender: FDA-Public Use
  Company Number: WAES 0610USA13899

PATIENT
  Sex: Female

DRUGS (2)
  1. FOSAMAX [Suspect]
     Dosage: PO ; PO
     Route: 048
     Dates: start: 19980101, end: 20010101
  2. FOSAMAX [Suspect]
     Dosage: PO ; PO
     Route: 048
     Dates: start: 20030101, end: 20040101

REACTIONS (1)
  - OSTEONECROSIS [None]
